FAERS Safety Report 13820934 (Version 1)
Quarter: 2017Q3

REPORT INFORMATION
  Report Type: Spontaneous
  Country: US (occurrence: US)
  Receive Date: 20170801
  Receipt Date: 20170801
  Transmission Date: 20171127
  Serious: No
  Sender: FDA-Public Use
  Company Number: US-GLENMARK PHARMACEUTICALS-2016GMK025681

PATIENT

DRUGS (2)
  1. VALIUM [Concomitant]
     Active Substance: DIAZEPAM
     Indication: TREMOR
     Dosage: UNK
     Route: 065
  2. MUPIROCIN. [Suspect]
     Active Substance: MUPIROCIN
     Indication: IMPETIGO
     Dosage: UNK, BID
     Route: 045
     Dates: start: 201610, end: 20161228

REACTIONS (5)
  - Rhinorrhoea [Recovered/Resolved]
  - Incorrect dose administered [Unknown]
  - Incorrect route of drug administration [Unknown]
  - Incorrect drug administration duration [Unknown]
  - Drug ineffective [Unknown]

NARRATIVE: CASE EVENT DATE: 201610
